FAERS Safety Report 5152887-5 (Version None)
Quarter: 2006Q4

REPORT INFORMATION
  Report Type: 
  Country: None (occurrence: None)
  Receive Date: 20061117
  Receipt Date: 20061106
  Transmission Date: 20070319
  Serious: Yes (Hospitalization)
  Sender: FDA-Public Use
  Company Number: FR-JNJFOC-20061004003

PATIENT
  Age: 71 Year
  Sex: Male

DRUGS (8)
  1. ACETAMINOPHEN AND TRAMADOL HCL [Suspect]
     Indication: RIB FRACTURE
     Route: 048
  2. PROPOFOL [Suspect]
     Indication: RIB FRACTURE
     Route: 048
  3. ALLOPURINOL [Suspect]
     Indication: ARTHROPATHY
     Route: 048
  4. ZANIDIP [Suspect]
     Indication: ESSENTIAL HYPERTENSION
     Route: 048
  5. ACTONEL [Concomitant]
     Route: 048
  6. LAMALINE [Concomitant]
     Route: 048
  7. ACETAMINOPHEN W/ PROPOXYPHENE HCL [Concomitant]
     Route: 048
  8. DURAGESIC-100 [Concomitant]
     Route: 062

REACTIONS (4)
  - AGRANULOCYTOSIS [None]
  - LEUKOPENIA [None]
  - THROMBOCYTOPENIA [None]
  - TRANSAMINASES INCREASED [None]
